FAERS Safety Report 7039683-9 (Version None)
Quarter: 2010Q3

REPORT INFORMATION
  Report Type: 
  Country: None (occurrence: None)
  Receive Date: 20100929
  Receipt Date: 20100607
  Transmission Date: 20110219
  Serious: No
  Sender: FDA-Public Use
  Company Number: US-WYE-H15690410

PATIENT
  Age: 79 Year
  Sex: Female

DRUGS (10)
  1. PRISTIQ [Suspect]
     Indication: DEPRESSION
     Dosage: 50 MG 1X PER 1 DAY, ORAL
     Route: 048
     Dates: start: 20100520
  2. POTASSIUM (POTASSIUM) [Concomitant]
  3. MIRTAZAPINE [Concomitant]
  4. FUROSEMDIE (FUROSEMIDE) [Concomitant]
  5. LANSOPRAZOLE [Concomitant]
  6. COREG [Concomitant]
  7. ABILIFY [Concomitant]
  8. LIPITOR [Concomitant]
  9. LISINOPRIL [Concomitant]
  10. CLONAZEPAM [Concomitant]

REACTIONS (1)
  - MEDICATION RESIDUE [None]
